FAERS Safety Report 11182891 (Version 2)
Quarter: 2015Q3

REPORT INFORMATION
  Report Type: Spontaneous
  Country: MA (occurrence: MA)
  Receive Date: 20150611
  Receipt Date: 20150701
  Transmission Date: 20151125
  Serious: Yes (Other)
  Sender: FDA-Public Use
  Company Number: MA-ABBVIE-15P-110-1404654-00

PATIENT
  Age: 21 Year
  Sex: Male

DRUGS (2)
  1. EXVIERA [Suspect]
     Active Substance: DASABUVIR
     Indication: CHRONIC HEPATITIS C
     Dosage: UNKNOWN DOSING AND FREQUENCY
     Route: 048
     Dates: start: 20150502, end: 20150522
  2. VIEKIRAX [Suspect]
     Active Substance: OMBITASVIR\PARITAPREVIR\RITONAVIR
     Indication: CHRONIC HEPATITIS C
     Dosage: UNKNOWN DOSING AND FREQUENCY
     Route: 048
     Dates: start: 20150502, end: 20150522

REACTIONS (2)
  - Haemoptysis [Recovered/Resolved]
  - Tuberculosis [Recovering/Resolving]

NARRATIVE: CASE EVENT DATE: 20150508
